FAERS Safety Report 15763983 (Version 1)
Quarter: 2018Q4

REPORT INFORMATION
  Report Type: Spontaneous
  Country: US (occurrence: US)
  Receive Date: 20181227
  Receipt Date: 20181227
  Transmission Date: 20190205
  Serious: No
  Sender: FDA-Public Use
  Company Number: US-LEO PHARMA-315475

PATIENT
  Age: 66 Year
  Sex: Male

DRUGS (2)
  1. SKINOREN GEL [Suspect]
     Active Substance: AZELAIC ACID
     Indication: ROSACEA
     Dosage: ON NOSE AND CHEEK
     Route: 061
  2. MAINTANANCE BLOOD PRESSURE MEDS [Concomitant]
     Indication: PRODUCT USED FOR UNKNOWN INDICATION

REACTIONS (4)
  - Application site erythema [Not Recovered/Not Resolved]
  - Application site irritation [Recovered/Resolved]
  - Application site pruritus [Recovered/Resolved]
  - Inappropriate schedule of product administration [Unknown]
